FAERS Safety Report 4688016-1 (Version None)
Quarter: 2005Q2

REPORT INFORMATION
  Report Type: 
  Country: None (occurrence: None)
  Receive Date: 20050610
  Receipt Date: 20050202
  Transmission Date: 20051028
  Serious: Yes (Death, Hospitalization, Disabling)
  Sender: FDA-Public Use
  Company Number: 2005GB00226

PATIENT
  Age: 65 Year
  Sex: Female

DRUGS (11)
  1. CRESTOR [Suspect]
     Indication: BLOOD CHOLESTEROL INCREASED
     Route: 048
     Dates: start: 20040708, end: 20041001
  2. CRESTOR [Suspect]
     Indication: HYPERTENSION
     Route: 048
     Dates: start: 20040708, end: 20041001
  3. SLOZEM [Concomitant]
     Route: 048
  4. PERINDOPRIL [Concomitant]
     Route: 048
  5. LANSOPRAZOLE [Concomitant]
     Route: 048
  6. BECONASE [Concomitant]
     Route: 055
  7. VENTOLIN [Concomitant]
     Route: 055
  8. GTN [Concomitant]
  9. DOMPERIDONE [Concomitant]
     Dates: end: 20041201
  10. IBUPROFEN [Concomitant]
     Dates: start: 20041201
  11. NICORANDIL [Concomitant]

REACTIONS (4)
  - HEPATIC CIRRHOSIS [None]
  - HEPATITIS [None]
  - SPIDER NAEVUS [None]
  - TELANGIECTASIA [None]
